FAERS Safety Report 9320032 (Version 6)
Quarter: 2013Q3

REPORT INFORMATION
  Report Type: Report from Study
  Country: FR (occurrence: FR)
  Receive Date: 20130530
  Receipt Date: 20130719
  Transmission Date: 20140515
  Serious: Yes (Hospitalization)
  Sender: FDA-Public Use
  Company Number: FR-PFIZER INC-2013161692

PATIENT
  Age: 68 Year
  Sex: Male
  Weight: 72 kg

DRUGS (3)
  1. TORISEL [Suspect]
     Indication: MANTLE CELL LYMPHOMA
     Dosage: 175 MG, WEEKLY
     Route: 042
     Dates: start: 20100908, end: 20100908
  2. TORISEL [Suspect]
     Dosage: 75 MG, WEEKLY
     Route: 042
     Dates: start: 20100929, end: 20101013
  3. TORISEL [Suspect]
     Dosage: 75 MG, WEEKLY
     Route: 042
     Dates: start: 20101110, end: 20110209

REACTIONS (4)
  - Diabetic complication [Recovered/Resolved]
  - Polyuria [Recovered/Resolved]
  - Polydipsia [Recovered/Resolved]
  - Abdominal pain upper [Unknown]
